FAERS Safety Report 24373066 (Version 6)
Quarter: 2025Q2

REPORT INFORMATION
  Report Type: Report from Study
  Country: US (occurrence: US)
  Receive Date: 20240927
  Receipt Date: 20250425
  Transmission Date: 20250717
  Serious: No
  Sender: SUNOVION
  Company Number: US-SMPA-2024SPA003080AA

PATIENT

DRUGS (2)
  1. ORGOVYX [Suspect]
     Active Substance: RELUGOLIX
     Indication: Prostate cancer
     Route: 048
     Dates: start: 20240905, end: 20240905
  2. ORGOVYX [Suspect]
     Active Substance: RELUGOLIX
     Dosage: 120 MG, QD
     Route: 048
     Dates: start: 20240906

REACTIONS (11)
  - General physical health deterioration [Unknown]
  - Dizziness postural [Unknown]
  - Decreased appetite [Unknown]
  - Anorectal discomfort [Not Recovered/Not Resolved]
  - Dysuria [Unknown]
  - Diarrhoea [Not Recovered/Not Resolved]
  - Fatigue [Unknown]
  - Hot flush [Recovering/Resolving]
  - Depression [Unknown]
  - Asthenia [Unknown]
  - Product dose omission in error [Unknown]
